FAERS Safety Report 8854450 (Version 1)
Quarter: 2012Q4

REPORT INFORMATION
  Report Type: 
  Country: US (occurrence: US)
  Receive Date: 20121023
  Receipt Date: 20121023
  Transmission Date: 20130627
  Serious: Yes (Other)
  Sender: FDA-Public Use
  Company Number: US-BAYER-2012-108450

PATIENT
  Age: 62 Year
  Sex: Male
  Weight: 72 kg

DRUGS (3)
  1. ACETYLSALICYLIC ACID({=100 MG) [Suspect]
     Indication: BLOOD PRESSURE INCREASED
     Dosage: UNK UNK, QD
  2. BAYER EXTRA STRENGTH BACK + BODY PAIN [Suspect]
     Indication: ELEVATED BP
     Dosage: 1 DF, QD
  3. ACETYLSALICYLIC ACID (} 100 MG) [Suspect]
     Indication: ELEVATED BP
     Dosage: 1 DF, QD

REACTIONS (1)
  - Rectal haemorrhage [Recovered/Resolved]
